FAERS Safety Report 12777009 (Version 1)
Quarter: 2016Q3

REPORT INFORMATION
  Report Type: Report from Study
  Country: DE (occurrence: DE)
  Receive Date: 20160923
  Receipt Date: 20160923
  Transmission Date: 20161109
  Serious: Yes (Hospitalization)
  Sender: FDA-Public Use
  Company Number: US-ASTRAZENECA-2016SF00965

PATIENT
  Age: 218 Day
  Sex: Male

DRUGS (4)
  1. SYNAGIS [Suspect]
     Active Substance: PALIVIZUMAB
     Indication: ANTIVIRAL PROPHYLAXIS
     Dosage: 100 MG
     Route: 030
     Dates: start: 20090211, end: 20090211
  2. SYNAGIS [Suspect]
     Active Substance: PALIVIZUMAB
     Indication: ANTIVIRAL PROPHYLAXIS
     Dosage: 86 MG
     Route: 030
     Dates: start: 20081210, end: 20081210
  3. SYNAGIS [Suspect]
     Active Substance: PALIVIZUMAB
     Indication: ANTIVIRAL PROPHYLAXIS
     Dosage: 100 MG
     Route: 030
     Dates: start: 20090312, end: 20090312
  4. SYNAGIS [Suspect]
     Active Substance: PALIVIZUMAB
     Indication: ANTIVIRAL PROPHYLAXIS
     Dosage: 100 MG
     Route: 030
     Dates: start: 20090113, end: 20090113

REACTIONS (5)
  - Restlessness [Unknown]
  - Upper respiratory tract infection [Unknown]
  - Screaming [Unknown]
  - Growth retardation [Unknown]
  - Body temperature increased [Unknown]

NARRATIVE: CASE EVENT DATE: 20081210
